FAERS Safety Report 4424672-0 (Version None)
Quarter: 2004Q3

REPORT INFORMATION
  Report Type: 
  Country: None (occurrence: None)
  Receive Date: 20040806
  Receipt Date: 20040721
  Transmission Date: 20050211
  Serious: Yes (Hospitalization)
  Sender: FDA-Public Use
  Company Number: 6009749

PATIENT
  Age: 89 Year
  Sex: Female

DRUGS (3)
  1. BISOPROLOL FUMARATE [Suspect]
     Dosage: 1.25 MG
     Dates: start: 20030319
  2. DIGOXIN [Suspect]
     Indication: LEFT VENTRICULAR FAILURE
     Dosage: 1 DOSAGE
     Route: 048
     Dates: start: 20030311, end: 20030321
  3. CORDARONE [Concomitant]

REACTIONS (7)
  - ATRIAL FIBRILLATION [None]
  - BRADYCARDIA [None]
  - FACE INJURY [None]
  - FALL [None]
  - LOSS OF CONSCIOUSNESS [None]
  - RIB FRACTURE [None]
  - VERTIGO [None]
